FAERS Safety Report 10060742 (Version 2)
Quarter: 2014Q2

REPORT INFORMATION
  Report Type: Spontaneous
  Country: BR (occurrence: BR)
  Receive Date: 20140404
  Receipt Date: 20140404
  Transmission Date: 20141212
  Serious: Yes (Other)
  Sender: FDA-Public Use
  Company Number: BR-ABBVIE-12P-020-0932189-00

PATIENT
  Sex: Female
  Weight: 130 kg

DRUGS (6)
  1. DEPAKENE TABLETS [Suspect]
     Indication: DEPRESSION
     Dosage: 1000 MILLIGRAM; IN THE MORNING AND AT NIGHT
     Route: 048
  2. DONAREN [Concomitant]
     Indication: DEPRESSION
     Dosage: A THIRD OF A TABLET- ONCE PER DAY AT BED TIME
     Route: 048
  3. VENLAFAXINE HYDROCHLORIDE [Concomitant]
     Indication: DEPRESSION
     Dosage: AT NIGHT; 75 MILLIGRAM
     Route: 048
  4. CLONAZEPAM [Concomitant]
     Indication: SEDATIVE THERAPY
     Dosage: AT NIGHT; 0.5 MILLIGRAM
     Route: 048
  5. NITRENDIPINO [Concomitant]
     Indication: HYPERTENSION
     Dosage: ONCE IN THE MORNING; 20 MILLIGRAM
     Route: 048
  6. ALL OTHER THERAPEUTIC PRODUCTS [Concomitant]
     Indication: ANTIDEPRESSANT THERAPY

REACTIONS (14)
  - Lymphoma [Unknown]
  - Pain in extremity [Not Recovered/Not Resolved]
  - Pain [Unknown]
  - Blood pressure fluctuation [Unknown]
  - Waist circumference increased [Unknown]
  - Activities of daily living impaired [Unknown]
  - Inappropriate schedule of drug administration [Unknown]
  - Weight increased [Not Recovered/Not Resolved]
  - Tachycardia [Not Recovered/Not Resolved]
  - Anxiety [Not Recovered/Not Resolved]
  - Malaise [Not Recovered/Not Resolved]
  - Dizziness [Not Recovered/Not Resolved]
  - Tinnitus [Not Recovered/Not Resolved]
  - Blood pressure increased [Unknown]
